FAERS Safety Report 19880023 (Version 1)
Quarter: 2021Q3

REPORT INFORMATION
  Report Type: Spontaneous
  Country: PL (occurrence: PL)
  Receive Date: 20210924
  Receipt Date: 20210924
  Transmission Date: 20211014
  Serious: Yes (Other)
  Sender: FDA-Public Use
  Company Number: NVSC2021PL212475

PATIENT
  Sex: Male

DRUGS (1)
  1. OSPEN 1500 [PHENOXYMETHYLPENICILLIN (= PENICILLIN V)] [Suspect]
     Active Substance: PENICILLIN V
     Indication: PRODUCT USED FOR UNKNOWN INDICATION
     Dosage: UNK
     Route: 065

REACTIONS (5)
  - Pruritus [Unknown]
  - Rash [Unknown]
  - Glossitis [Unknown]
  - Oral disorder [Unknown]
  - Pharyngeal oedema [Unknown]
